FAERS Safety Report 20199269 (Version 2)
Quarter: 2021Q4

REPORT INFORMATION
  Report Type: Spontaneous
  Country: CZ (occurrence: CZ)
  Receive Date: 20211217
  Receipt Date: 20211229
  Transmission Date: 20220303
  Serious: Yes (Hospitalization, Other)
  Sender: FDA-Public Use
  Company Number: CZ-JNJFOC-20211223256

PATIENT
  Age: 45 Year
  Sex: Female

DRUGS (4)
  1. VELCADE [Suspect]
     Active Substance: BORTEZOMIB
     Indication: Plasma cell myeloma
     Dosage: UNK
     Route: 065
  2. DEXAMETHASONE [Suspect]
     Active Substance: DEXAMETHASONE
     Indication: Plasma cell myeloma
     Dosage: UNK
     Route: 065
  3. CYCLOPHOSPHAMIDE [Suspect]
     Active Substance: CYCLOPHOSPHAMIDE
     Indication: Plasma cell myeloma
     Dosage: UNK
     Route: 065
  4. THALIDOMIDE [Suspect]
     Active Substance: THALIDOMIDE
     Indication: Plasma cell myeloma
     Dosage: UNK
     Route: 065

REACTIONS (6)
  - Hypercalcaemia [Unknown]
  - Nausea [Unknown]
  - Plasma cell myeloma [Unknown]
  - Rhinitis [Unknown]
  - Cough [Unknown]
  - Bone pain [Unknown]
